FAERS Safety Report 9417240 (Version 1)
Quarter: 2013Q3

REPORT INFORMATION
  Report Type: Spontaneous
  Country: US (occurrence: US)
  Receive Date: 20130724
  Receipt Date: 20130724
  Transmission Date: 20140515
  Serious: No
  Sender: FDA-Public Use
  Company Number: US-BAUSCH-BL-2013-002525

PATIENT
  Age: 28 Year
  Sex: Female
  Weight: 81.72 kg

DRUGS (1)
  1. OPCON-A [Suspect]
     Indication: EYE ALLERGY
     Dosage: GTT; ONCE; OPHTHALMIC
     Route: 047
     Dates: start: 20130425, end: 20130425

REACTIONS (1)
  - Mydriasis [Unknown]
